FAERS Safety Report 7658066-1 (Version None)
Quarter: 2011Q3

REPORT INFORMATION
  Report Type: 
  Country: None (occurrence: None)
  Receive Date: 20110805
  Receipt Date: 20110724
  Transmission Date: 20111222
  Serious: Yes (Other)
  Sender: FDA-Public Use
  Company Number: US-RB-027144-11

PATIENT
  Age: 17 Year
  Sex: Male

DRUGS (1)
  1. MUCINEX DM [Suspect]
     Indication: PRODUCT USED FOR UNKNOWN INDICATION
     Dosage: 8 TABLETS
     Route: 048

REACTIONS (3)
  - DRUG ABUSE [None]
  - OVERDOSE [None]
  - NO ADVERSE EVENT [None]
